FAERS Safety Report 6908239-8 (Version None)
Quarter: 2010Q3

REPORT INFORMATION
  Report Type: 
  Country: None (occurrence: None)
  Receive Date: 20100805
  Receipt Date: 20100728
  Transmission Date: 20110219
  Serious: Yes (Death, Other)
  Sender: FDA-Public Use
  Company Number: US-ROCHE-707887

PATIENT
  Sex: Male
  Weight: 109.3 kg

DRUGS (1)
  1. CAPECITABINE [Suspect]
     Route: 048
     Dates: start: 20091006

REACTIONS (2)
  - DEATH [None]
  - TUMOUR COMPRESSION [None]
